FAERS Safety Report 7234896-5 (Version None)
Quarter: 2011Q1

REPORT INFORMATION
  Report Type: 
  Country: None (occurrence: None)
  Receive Date: 20110120
  Receipt Date: 20110107
  Transmission Date: 20110831
  Serious: No
  Sender: FDA-Public Use
  Company Number: US-PFIZER INC-2011008778

PATIENT
  Sex: Female

DRUGS (1)
  1. ADVIL COLD AND SINUS [Suspect]
     Indication: HYPERSENSITIVITY
     Dosage: 1 DF, AS NEEDED
     Route: 048
     Dates: start: 20101001, end: 20110103

REACTIONS (1)
  - FEELING JITTERY [None]
